FAERS Safety Report 8261278-X (Version None)
Quarter: 2012Q2

REPORT INFORMATION
  Report Type: 
  Country: None (occurrence: None)
  Receive Date: 20120405
  Receipt Date: 20120328
  Transmission Date: 20120825
  Serious: Yes (Other)
  Sender: FDA-Public Use
  Company Number: US-JNJFOC-20120305516

PATIENT
  Sex: Male
  Weight: 70.31 kg

DRUGS (4)
  1. NUCYNTA ER [Suspect]
     Indication: PAIN
     Dosage: ONCE A DAY
     Route: 048
  2. NUCYNTA ER [Suspect]
     Dosage: 2-3 TIMES AS NECESSARY
     Route: 048
  3. NUCYNTA ER [Suspect]
     Route: 048
  4. ASACOL [Concomitant]
     Indication: COLITIS ULCERATIVE
     Route: 048
     Dates: start: 19970101

REACTIONS (10)
  - INSOMNIA [None]
  - DIZZINESS [None]
  - SYNCOPE [None]
  - FEELING HOT [None]
  - FEELING JITTERY [None]
  - DYSPNOEA [None]
  - NERVOUSNESS [None]
  - ANXIETY [None]
  - DRUG INEFFECTIVE [None]
  - FEELING ABNORMAL [None]
